FAERS Safety Report 14886781 (Version 1)
Quarter: 2018Q2

REPORT INFORMATION
  Report Type: Spontaneous
  Country: US (occurrence: US)
  Receive Date: 20180512
  Receipt Date: 20180512
  Transmission Date: 20180711
  Serious: Yes (Other)
  Sender: FDA-Public Use
  Company Number: US-SA-2018SA129762

PATIENT
  Age: 27 Year

DRUGS (1)
  1. SELSUN BLUE ACTIVE 3-IN-1 [Suspect]
     Active Substance: SALICYLIC ACID
     Route: 065
     Dates: start: 2018

REACTIONS (2)
  - Respiratory tract infection [Unknown]
  - Skin odour abnormal [Unknown]
